FAERS Safety Report 9098145 (Version 2)
Quarter: 2013Q1

REPORT INFORMATION
  Report Type: Spontaneous
  Country: CG (occurrence: CG)
  Receive Date: 20130213
  Receipt Date: 20130214
  Transmission Date: 20140127
  Serious: Yes (Death, Other)
  Sender: FDA-Public Use
  Company Number: PHHY2013CG013789

PATIENT
  Sex: Male

DRUGS (4)
  1. GLIVEC [Suspect]
     Indication: CHRONIC MYELOID LEUKAEMIA
     Dosage: 600 MG, UNK
     Dates: start: 2012, end: 201212
  2. ARACYTINE [Concomitant]
     Indication: CHRONIC MYELOID LEUKAEMIA
     Dosage: UNK UKN, UNK
  3. DEXAMETHASONE [Concomitant]
     Dosage: UNK UKN, UNK
  4. DAUNORUBICINE [Concomitant]
     Dosage: UNK UKN, UNK

REACTIONS (2)
  - Chronic myeloid leukaemia transformation [Fatal]
  - Sepsis [None]
